FAERS Safety Report 21106321 (Version 1)
Quarter: 2022Q3

REPORT INFORMATION
  Report Type: Spontaneous
  Country: BR (occurrence: BR)
  Receive Date: 20220720
  Receipt Date: 20220720
  Transmission Date: 20221026
  Serious: Yes (Other)
  Sender: FDA-Public Use
  Company Number: BR-NOVARTISPH-NVSC2022BR164466

PATIENT
  Sex: Female

DRUGS (1)
  1. TEGRETOL [Suspect]
     Active Substance: CARBAMAZEPINE
     Indication: Seizure
     Dosage: 400 MG
     Route: 065

REACTIONS (6)
  - Seizure [Unknown]
  - Tongue disorder [Unknown]
  - Malaise [Unknown]
  - Dysarthria [Unknown]
  - Headache [Unknown]
  - Product availability issue [Unknown]
